FAERS Safety Report 7773120-1 (Version None)
Quarter: 2011Q3

REPORT INFORMATION
  Report Type: 
  Country: None (occurrence: None)
  Receive Date: 20110922
  Receipt Date: 20100803
  Transmission Date: 20111222
  Serious: No
  Sender: FDA-Public Use
  Company Number: US-ASTRAZENECA-2007UW25477

PATIENT
  Age: 39 Year
  Sex: Female
  Weight: 95.7 kg

DRUGS (18)
  1. SEROQUEL [Suspect]
     Indication: DEPRESSION
     Dosage: 25 MG TO 100 MG
     Route: 048
     Dates: start: 20040301, end: 20060101
  2. AMBIEN [Concomitant]
  3. SEROQUEL [Suspect]
     Indication: INSOMNIA
     Dosage: 25 MG TO 100 MG
     Route: 048
     Dates: start: 20040301, end: 20060101
  4. SEROQUEL [Suspect]
     Dosage: 25 MG TABLET DISPENSED
     Route: 048
     Dates: start: 20050512
  5. NAPROSYN [Concomitant]
     Dates: start: 20050914
  6. SEROQUEL [Suspect]
     Dosage: 25 MG TO 100 MG
     Route: 048
     Dates: start: 20050512, end: 20060101
  7. TIZANIDINE HCL [Concomitant]
     Dosage: 5 MG TABLET DISPENSED
     Dates: start: 20050125
  8. LIPITOR [Concomitant]
     Dosage: 10 MG TABLET DISPENSED
     Dates: start: 20020430
  9. SEROQUEL [Suspect]
     Indication: SLEEP DISORDER
     Dosage: 25 MG TO 100 MG
     Route: 048
     Dates: start: 20040301, end: 20060101
  10. SEROQUEL [Suspect]
     Dosage: 25 MG TO 100 MG
     Route: 048
     Dates: start: 20050512, end: 20060101
  11. CYCLOPHOSPHAMIDE [Concomitant]
     Dosage: 10 MG TABLET DISPENSED
     Dates: start: 20020829
  12. TOPAMAX [Concomitant]
     Dates: start: 20061130
  13. SOMA [Concomitant]
     Dates: start: 20050914
  14. SEROQUEL [Suspect]
     Dosage: 25 MG TO 100 MG
     Route: 048
     Dates: start: 20050512, end: 20060101
  15. WELLBUTRIN SR [Concomitant]
     Dosage: 150 MG TABLET DISPENSED
     Dates: start: 20020422
  16. SONATA [Concomitant]
     Dates: start: 20061130
  17. SEROQUEL [Suspect]
     Dosage: 25 MG TABLET DISPENSED
     Route: 048
     Dates: start: 20050512
  18. SEROQUEL [Suspect]
     Dosage: 25 MG TABLET DISPENSED
     Route: 048
     Dates: start: 20050512

REACTIONS (7)
  - DIABETES MELLITUS [None]
  - BLOOD CHOLESTEROL INCREASED [None]
  - TYPE 2 DIABETES MELLITUS [None]
  - ADVERSE DRUG REACTION [None]
  - LIVER DISORDER [None]
  - HYPERLIPIDAEMIA [None]
  - RENAL DISORDER [None]
